FAERS Safety Report 17812026 (Version 2)
Quarter: 2021Q1

REPORT INFORMATION
  Report Type: Spontaneous
  Country: JP (occurrence: JP)
  Receive Date: 20200521
  Receipt Date: 20210226
  Transmission Date: 20210419
  Serious: No
  Sender: FDA-Public Use
  Company Number: JP-ASTRAZENECA-2020SE65527

PATIENT
  Age: 28796 Day
  Sex: Female
  Weight: 45 kg

DRUGS (13)
  1. DORMOLOL [Concomitant]
     Route: 047
  2. FASLODEX [Suspect]
     Active Substance: FULVESTRANT
     Indication: BREAST CANCER FEMALE
     Route: 030
     Dates: start: 20170913
  3. FASLODEX [Suspect]
     Active Substance: FULVESTRANT
     Indication: BREAST CANCER FEMALE
     Route: 030
     Dates: start: 20200311
  4. UBRETID [Concomitant]
     Active Substance: DISTIGMINE BROMIDE
     Dosage: AFTER BREAKFAST
     Route: 048
  5. NEXIUM [Concomitant]
     Active Substance: ESOMEPRAZOLE MAGNESIUM
     Dosage: AFTER BREAKFAST
     Route: 048
  6. RANMARK [Concomitant]
     Active Substance: DENOSUMAB
     Dosage: DOSE UNKNOWN
     Route: 048
     Dates: start: 20170913
  7. TRAMAL OD [Concomitant]
     Active Substance: TRAMADOL
     Dosage: AFTER EACH MEALS
     Route: 048
  8. KARY UNI [Concomitant]
     Active Substance: PIRENOXINE
     Route: 047
  9. DENOTAS [Concomitant]
     Active Substance: CALCIUM CARBONATE\CHOLECALCIFEROL\MAGNESIUM CARBONATE
     Dosage: AFTER BREAKFAST
     Route: 048
  10. EBRANTIL [Concomitant]
     Active Substance: URAPIDIL
     Dosage: AFTER BREAKFAST AND DINNER
     Route: 048
  11. L?CARBOCISTEINE [Concomitant]
     Active Substance: CARBOCYSTEINE
     Dosage: AFTER EACH MEALS
     Route: 048
  12. PREDONINE [Concomitant]
     Active Substance: PREDNISOLONE
     Dosage: AFTER BREAKFAST
     Route: 048
  13. MUCOSTA [Concomitant]
     Active Substance: REBAMIPIDE
     Dosage: AFTER EACH BREAKFAST
     Route: 048

REACTIONS (3)
  - Injection site injury [Recovered/Resolved]
  - Injection site necrosis [Recovered/Resolved]
  - Injection site erythema [Recovered/Resolved]

NARRATIVE: CASE EVENT DATE: 20200313
